FAERS Safety Report 16338386 (Version 2)
Quarter: 2019Q2

REPORT INFORMATION
  Report Type: Spontaneous
  Country: CH (occurrence: CH)
  Receive Date: 20190521
  Receipt Date: 20190619
  Transmission Date: 20190711
  Serious: Yes (Other)
  Sender: FDA-Public Use
  Company Number: CH-AMREGENT-20190979

PATIENT
  Sex: Female

DRUGS (3)
  1. MALTOFER FOL TABLETS [Concomitant]
     Active Substance: FOLIC ACID\IRON POLYMALTOSE
     Dosage: UNKNOWN
     Route: 048
  2. FERINJECT [Suspect]
     Active Substance: FERRIC CARBOXYMALTOSE
     Dosage: 300 MG, 1 TOTAL
     Route: 041
     Dates: start: 20190214, end: 20190214
  3. PANTOPRAZOLE [Concomitant]
     Active Substance: PANTOPRAZOLE
     Dosage: AS REQUIRED
     Route: 065

REACTIONS (5)
  - Erythema [Unknown]
  - Dyspnoea [Unknown]
  - Product use in unapproved indication [Unknown]
  - Feeling hot [Unknown]
  - Urticaria [Unknown]

NARRATIVE: CASE EVENT DATE: 20190214
